FAERS Safety Report 8097976-0 (Version None)
Quarter: 2012Q1

REPORT INFORMATION
  Report Type: 
  Country: None (occurrence: None)
  Receive Date: 20120128
  Receipt Date: 20110729
  Transmission Date: 20120608
  Serious: No
  Sender: FDA-Public Use
  Company Number: US-ABBOTT-11P-163-0843276-00

PATIENT
  Sex: Female

DRUGS (3)
  1. HUMIRA [Suspect]
     Indication: CROHN'S DISEASE
     Route: 058
     Dates: start: 20110712, end: 20110712
  2. HUMIRA [Suspect]
     Route: 058
     Dates: start: 20110720, end: 20110720
  3. HUMIRA [Suspect]
     Route: 058
     Dates: start: 20110727

REACTIONS (2)
  - ASTHENIA [None]
  - FATIGUE [None]
